FAERS Safety Report 5200172-5 (Version None)
Quarter: 2007Q1

REPORT INFORMATION
  Report Type: 
  Country: None (occurrence: None)
  Receive Date: 20070103
  Receipt Date: 20061220
  Transmission Date: 20070707
  Serious: Yes (Death, Other)
  Sender: FDA-Public Use
  Company Number: 2006US002950

PATIENT
  Age: 26 Year
  Sex: Female

DRUGS (6)
  1. PROGRAF [Suspect]
     Indication: PROPHYLAXIS AGAINST TRANSPLANT REJECTION
     Dosage: SEE IMAGE
     Route: 048
  2. PREDNISONE TAB [Concomitant]
  3. CYCLOPORINE [Concomitant]
  4. GANCICLOVIR [Concomitant]
  5. EPOGEN [Concomitant]
  6. RITUXIMAB (RITUXIMAB) [Concomitant]

REACTIONS (9)
  - CYTOMEGALOVIRUS INFECTION [None]
  - EPISTAXIS [None]
  - EXTRANODAL MARGINAL ZONE B-CELL LYMPHOMA (MALT TYPE) [None]
  - LOSS OF CONSCIOUSNESS [None]
  - LYMPHOPROLIFERATIVE DISORDER [None]
  - NORMOCHROMIC NORMOCYTIC ANAEMIA [None]
  - PARVOVIRUS B19 SEROLOGY POSITIVE [None]
  - SUDDEN DEATH [None]
  - WEIGHT DECREASED [None]
